FAERS Safety Report 9521773 (Version 3)
Quarter: 2014Q2

REPORT INFORMATION
  Report Type: Spontaneous
  Country: CN (occurrence: CN)
  Receive Date: 20130913
  Receipt Date: 20140515
  Transmission Date: 20141212
  Serious: Yes (Hospitalization)
  Sender: FDA-Public Use
  Company Number: PHHY2013CN098118

PATIENT
  Age: 58 Year
  Sex: Female

DRUGS (1)
  1. LOTENSIN [Suspect]
     Dosage: 1 %, PER DAY
     Dates: start: 20130903, end: 20130922

REACTIONS (3)
  - Blood pressure increased [Recovering/Resolving]
  - Drug ineffective [Unknown]
  - Therapeutic response decreased [Recovering/Resolving]
